FAERS Safety Report 20214896 (Version 5)
Quarter: 2022Q1

REPORT INFORMATION
  Report Type: Report from Study
  Country: US (occurrence: US)
  Receive Date: 20211222
  Receipt Date: 20220321
  Transmission Date: 20220423
  Serious: No
  Sender: FDA-Public Use
  Company Number: US-NOVARTISTESTPH-NVSC2021US292793

PATIENT
  Sex: Male

DRUGS (1)
  1. COSENTYX [Suspect]
     Active Substance: SECUKINUMAB
     Indication: Psoriasis
     Dosage: 300 MG,EVERY FOUR WEEKS
     Route: 058

REACTIONS (4)
  - Symptom recurrence [Unknown]
  - Product dose omission issue [Unknown]
  - Drug ineffective [Unknown]
  - Skin plaque [Unknown]
